FAERS Safety Report 20141499 (Version 2)
Quarter: 2022Q1

REPORT INFORMATION
  Report Type: Spontaneous
  Country: US (occurrence: US)
  Receive Date: 20211202
  Receipt Date: 20220209
  Transmission Date: 20220424
  Serious: Yes (Other)
  Sender: FDA-Public Use
  Company Number: US-GLAXOSMITHKLINE-US2021GSK247768

PATIENT
  Sex: Female

DRUGS (6)
  1. RANITIDINE HYDROCHLORIDE [Suspect]
     Active Substance: RANITIDINE HYDROCHLORIDE
     Indication: Product used for unknown indication
     Dosage: UNK
     Route: 065
     Dates: start: 2017, end: 2018
  2. ZANTAC [Suspect]
     Active Substance: RANITIDINE HYDROCHLORIDE
     Indication: Dyspepsia
     Dosage: 75 MG SEVERAL TIMES A WEEK
     Route: 065
     Dates: start: 201107, end: 201910
  3. ZANTAC [Suspect]
     Active Substance: RANITIDINE HYDROCHLORIDE
     Indication: Abdominal pain upper
     Dosage: 150 MG SEVERAL TIMES A WEEK
     Route: 065
     Dates: start: 201107, end: 201910
  4. RANITIDINE [Suspect]
     Active Substance: RANITIDINE
     Indication: Dyspepsia
     Dosage: 75 MG SEVERAL TIMES A WEEK
     Route: 065
     Dates: start: 201107, end: 201910
  5. RANITIDINE [Suspect]
     Active Substance: RANITIDINE
     Indication: Abdominal pain upper
     Dosage: 150 MG SEVERAL TIMES A WEEK
     Route: 065
     Dates: start: 201107, end: 201910
  6. RANITIDINE [Suspect]
     Active Substance: RANITIDINE
     Indication: Abdominal pain upper
     Dosage: 150 MG SEVERAL TIMES A WEEK
     Route: 065
     Dates: start: 201107, end: 201910

REACTIONS (15)
  - Renal cancer [Unknown]
  - Chronic kidney disease [Unknown]
  - Renal artery stenosis [Unknown]
  - Renal impairment [Unknown]
  - Renal cell carcinoma [Unknown]
  - Nephrolithiasis [Unknown]
  - Nephrocalcinosis [Unknown]
  - Renal hypertension [Unknown]
  - Diabetic nephropathy [Unknown]
  - Renal pain [Unknown]
  - Renal cyst [Unknown]
  - Renal mass [Unknown]
  - Haematuria [Unknown]
  - Hypertonic bladder [Unknown]
  - Ureterolithiasis [Unknown]
